FAERS Safety Report 7369531-9 (Version None)
Quarter: 2011Q1

REPORT INFORMATION
  Report Type: 
  Country: None (occurrence: None)
  Receive Date: 20110317
  Receipt Date: 20110317
  Transmission Date: 20110831
  Serious: Yes (Life-Threatening, Other)
  Sender: FDA-Public Use
  Company Number: None

PATIENT
  Age: 33 Year
  Sex: Male
  Weight: 95.2554 kg

DRUGS (4)
  1. CELEXA [Concomitant]
  2. VALIUM [Concomitant]
  3. AMBIEN [Suspect]
     Indication: SLEEP DISORDER
     Dosage: TOOK 1 WEEK BY MOUTH
     Dates: start: 20100601
  4. EFFEXOR [Concomitant]

REACTIONS (4)
  - PHYSICAL ASSAULT [None]
  - ABNORMAL SLEEP-RELATED EVENT [None]
  - AGGRESSION [None]
  - IMPRISONMENT [None]
